FAERS Safety Report 9199728 (Version 5)
Quarter: 2013Q3

REPORT INFORMATION
  Report Type: Report from Study
  Country: US (occurrence: US)
  Receive Date: 20130329
  Receipt Date: 20130719
  Transmission Date: 20140515
  Serious: No
  Sender: FDA-Public Use
  Company Number: US-VERTEX PHARMACEUTICALS INC.-2013-004220

PATIENT
  Age: 60 Year
  Sex: Female
  Weight: 82 kg

DRUGS (9)
  1. VX-950 (TELAPREVIR) [Suspect]
     Indication: HEPATITIS C
     Dosage: 750 MG, TID
     Route: 048
     Dates: start: 20130325, end: 201305
  2. RIBAVIRIN [Suspect]
     Indication: HEPATITIS C
     Dosage: 600MG AM, 400MG PM
     Route: 048
     Dates: start: 20130325, end: 201305
  3. PEGASYS [Suspect]
     Indication: HEPATITIS C
     Dosage: 180 ?G, QW
     Route: 058
     Dates: start: 20130325, end: 201305
  4. ESTRADIOL [Concomitant]
     Dosage: 0.1 MG/DAY PATCH 1/7
  5. BENADRYL [Concomitant]
     Dosage: 25 MG, QD
  6. IBUPROFEN [Concomitant]
     Dosage: 200 MG, PRN
  7. AMLODIPINE BESYLATE [Concomitant]
     Dosage: 5 MG, QD
  8. FUROSEMIDE [Concomitant]
     Dosage: 40 MG, QD
  9. PROVENTIL HFA [Concomitant]
     Dosage: 90 ?G, PRN

REACTIONS (6)
  - Insomnia [Not Recovered/Not Resolved]
  - Feeling hot [Unknown]
  - Cough [Unknown]
  - Fatigue [Unknown]
  - Rash erythematous [Not Recovered/Not Resolved]
  - Haemorrhoids [Unknown]
